FAERS Safety Report 9629875 (Version 1)
Quarter: 2013Q4

REPORT INFORMATION
  Report Type: Spontaneous
  Country: US (occurrence: US)
  Receive Date: 20131017
  Receipt Date: 20131017
  Transmission Date: 20140711
  Serious: Yes (Other)
  Sender: FDA-Public Use
  Company Number: US-BRISTOL-MYERS SQUIBB COMPANY-19615764

PATIENT
  Sex: 0

DRUGS (1)
  1. BYETTA [Suspect]
     Dates: start: 2008, end: 201209

REACTIONS (1)
  - Thyroid cancer [Unknown]
